FAERS Safety Report 12154803 (Version 1)
Quarter: 2016Q1

REPORT INFORMATION
  Report Type: Spontaneous
  Country: US (occurrence: None)
  Receive Date: 20160304
  Receipt Date: 20160304
  Transmission Date: 20160526
  Serious: Yes (Other)
  Sender: FDA-Public Use
  Company Number: None

PATIENT
  Age: 69 Year
  Sex: Female
  Weight: 85.28 kg

DRUGS (1)
  1. REMICADE [Suspect]
     Active Substance: INFLIXIMAB
     Indication: CROHN^S DISEASE
     Dosage: REMICADE 5MG/KG EVERY 8 WEEKS IV
     Route: 042
     Dates: start: 20090306, end: 201104

REACTIONS (2)
  - Therapy cessation [None]
  - Interstitial granulomatous dermatitis [None]

NARRATIVE: CASE EVENT DATE: 20151008
